FAERS Safety Report 8543720-X (Version None)
Quarter: 2012Q2

REPORT INFORMATION
  Report Type: 
  Country: None (occurrence: None)
  Receive Date: 20120416
  Receipt Date: 20090129
  Transmission Date: 20120825
  Serious: Yes (Other)
  Sender: FDA-Public Use
  Company Number: PHEH2009US01289

PATIENT
  Sex: Male

DRUGS (3)
  1. ARICEPT [Concomitant]
  2. EXELON [Suspect]
     Dosage: 4.6 MG, TRANSDERMAL,   9.5 MG
     Route: 062
  3. NAMENDA [Concomitant]

REACTIONS (3)
  - RETCHING [None]
  - MALAISE [None]
  - HYPERTENSION [None]
